FAERS Safety Report 8226173-0 (Version None)
Quarter: 2012Q1

REPORT INFORMATION
  Report Type: 
  Country: None (occurrence: None)
  Receive Date: 20120307
  Receipt Date: 20091019
  Transmission Date: 20120608
  Serious: No
  Sender: FDA-Public Use
  Company Number: PHEH2009US14577

PATIENT
  Age: 62 Year
  Sex: Male

DRUGS (3)
  1. ZOCOR [Concomitant]
  2. AVANDAMET (METFORMIN HYDROCHLORIDE, ROSIGLITAZONE MALEATE) [Concomitant]
  3. AFINITOR [Suspect]
     Indication: NEOPLASM MALIGNANT
     Dates: start: 20090825

REACTIONS (2)
  - ITCHING SCAR [None]
  - RASH [None]
